FAERS Safety Report 5012237-1 (Version None)
Quarter: 2006Q2

REPORT INFORMATION
  Report Type: 
  Country: None (occurrence: None)
  Receive Date: 20060524
  Receipt Date: 20060511
  Transmission Date: 20061013
  Serious: Yes (Other)
  Sender: FDA-Public Use
  Company Number: 2006024097

PATIENT
  Age: 75 Year
  Sex: Male
  Weight: 83.9154 kg

DRUGS (7)
  1. DETROL LA [Suspect]
     Indication: HYPERTONIC BLADDER
     Dosage: 4 MG (4 MG, 1 IN 1 D), ORAL
     Route: 048
     Dates: start: 20060101
  2. CARDURA [Suspect]
     Indication: HYPERTENSION
     Dosage: (4 MG)
  3. BENICAR [Suspect]
     Indication: HYPERTENSION
  4. HYDROCHLOROTHIAZIDE WITH TRIAMTERENE (HYDROCHLOROTHIAZIDE, TRIAMTERENE [Suspect]
     Indication: HYPERTENSION
  5. TARKA [Suspect]
     Indication: HYPERTENSION
  6. CALCIUM (CALCIUM) [Suspect]
     Indication: ILL-DEFINED DISORDER
  7. ZINC (ZINC) [Concomitant]

REACTIONS (3)
  - CONSTIPATION [None]
  - MICTURITION URGENCY [None]
  - NOCTURIA [None]
